FAERS Safety Report 13233700 (Version 1)
Quarter: 2017Q1

REPORT INFORMATION
  Report Type: Report from Study
  Country: None (occurrence: BR)
  Receive Date: 20170215
  Receipt Date: 20170215
  Transmission Date: 20170428
  Serious: Yes (Hospitalization, Other)
  Sender: FDA-Public Use
  Company Number: BR-ABBVIE-17K-020-1868137-00

PATIENT
  Age: 46 Year
  Sex: Female
  Weight: 60 kg

DRUGS (7)
  1. DIAZEPAM. [Concomitant]
     Active Substance: DIAZEPAM
     Indication: DEPRESSION
     Route: 048
  2. DUAL [Concomitant]
     Indication: DEPRESSION
     Route: 048
     Dates: start: 201606
  3. HUMIRA [Suspect]
     Active Substance: ADALIMUMAB
     Indication: PSORIATIC ARTHROPATHY
     Route: 058
     Dates: start: 20140101, end: 20161111
  4. CODEINE [Concomitant]
     Active Substance: CODEINE
     Indication: SPINAL DISORDER
     Route: 048
     Dates: start: 2015
  5. QUETIAPINE. [Concomitant]
     Active Substance: QUETIAPINE
     Indication: DEPRESSION
     Route: 048
     Dates: start: 201606
  6. HUMIRA [Suspect]
     Active Substance: ADALIMUMAB
     Route: 058
     Dates: start: 20161221
  7. AMITRIPTYLINE [Concomitant]
     Active Substance: AMITRIPTYLINE
     Indication: DEPRESSION
     Route: 048
     Dates: start: 2002

REACTIONS (4)
  - Red blood cell sedimentation rate increased [Unknown]
  - Ovarian cyst [Not Recovered/Not Resolved]
  - Urine analysis abnormal [Unknown]
  - Ovarian cyst [Recovered/Resolved]

NARRATIVE: CASE EVENT DATE: 201610
